FAERS Safety Report 5124967-1 (Version None)
Quarter: 2006Q4

REPORT INFORMATION
  Report Type: 
  Country: None (occurrence: None)
  Receive Date: 20061006
  Receipt Date: 20060920
  Transmission Date: 20070319
  Serious: Yes (Hospitalization)
  Sender: FDA-Public Use
  Company Number: 230626

PATIENT
  Age: 63 Year
  Sex: Male

DRUGS (4)
  1. AVASTIN [Suspect]
     Indication: COLORECTAL CANCER
     Dosage: 650.3 MG, Q3W; INTRAVENOUS
     Route: 042
     Dates: start: 20060322
  2. CAPECITABINE (CAPECITABINE) [Suspect]
     Indication: COLORECTAL CANCER
     Dosage: 2000 MG, QD; ORAL
     Route: 048
     Dates: start: 20060322
  3. OXALIPLATIN [Suspect]
     Indication: COLORECTAL CANCER
     Dosage: 130 MG/M2, Q3W; INTRAVENOUS
     Route: 042
     Dates: start: 20060320, end: 20060809
  4. ERBITUX [Suspect]
     Indication: COLORECTAL CANCER
     Dosage: 510 MG, Q3W; INTRAVENOUS
     Route: 042
     Dates: start: 20060322

REACTIONS (3)
  - ASCITES [None]
  - GENERALISED OEDEMA [None]
  - WEIGHT INCREASED [None]
